FAERS Safety Report 19990373 (Version 2)
Quarter: 2021Q4

REPORT INFORMATION
  Report Type: Report from Study
  Country: US (occurrence: US)
  Receive Date: 20211025
  Receipt Date: 20211103
  Transmission Date: 20220303
  Serious: Yes (Other)
  Sender: FDA-Public Use
  Company Number: US-NOVARTISPH-NVSC2021US190114

PATIENT
  Age: 1 Year
  Sex: Male
  Weight: 11 kg

DRUGS (9)
  1. ZOLGENSMA [Suspect]
     Active Substance: ONASEMNOGENE ABEPARVOVEC-XIOI
     Indication: Spinal muscular atrophy
     Dosage: 1.1 X E14VG/KG, ONCE/SINGLE
     Route: 042
     Dates: start: 20200923, end: 20200923
  2. ALBUTEROL [Concomitant]
     Active Substance: ALBUTEROL
     Indication: Nasal congestion
     Dosage: 2.5 MG
     Route: 065
     Dates: start: 20210724, end: 20210728
  3. ALBUTEROL [Concomitant]
     Active Substance: ALBUTEROL
     Indication: Inflammation
  4. DECADRON [Concomitant]
     Active Substance: DEXAMETHASONE
     Indication: Inflammation
     Dosage: 7.25 MG
     Route: 065
     Dates: start: 20210413
  5. PREDNISOLONE [Concomitant]
     Active Substance: PREDNISOLONE
     Indication: Product used for unknown indication
     Dosage: 3.4 ML
     Route: 065
     Dates: start: 20200921, end: 20201105
  6. PREDNISOLONE [Concomitant]
     Active Substance: PREDNISOLONE
     Dosage: 2.6 ML
     Route: 065
     Dates: start: 20201106, end: 20201113
  7. PREDNISOLONE [Concomitant]
     Active Substance: PREDNISOLONE
     Dosage: 2 ML
     Route: 065
     Dates: start: 20201114, end: 20201121
  8. PREDNISOLONE [Concomitant]
     Active Substance: PREDNISOLONE
     Dosage: 1.3 ML
     Route: 065
     Dates: start: 20201122, end: 20201129
  9. PREDNISOLONE [Concomitant]
     Active Substance: PREDNISOLONE
     Dosage: 0.7 ML
     Route: 065
     Dates: start: 20201130, end: 20201207

REACTIONS (18)
  - Hypoxia [Recovered/Resolved]
  - Croup infectious [Recovered/Resolved]
  - Croup infectious [Recovered/Resolved]
  - Croup infectious [Recovered/Resolved]
  - Hyperventilation [Recovered/Resolved]
  - Hyperventilation [Recovered/Resolved]
  - Procalcitonin [Recovered/Resolved]
  - Tachycardia [Recovered/Resolved]
  - Tachycardia [Recovered/Resolved]
  - Pyrexia [Recovered/Resolved]
  - Ear pain [Recovered/Resolved]
  - Tachycardia [Recovered/Resolved]
  - Tachycardia [Recovered/Resolved]
  - Tachypnoea [Recovered/Resolved]
  - Upper respiratory tract infection [Recovered/Resolved]
  - Dyspnoea [Recovered/Resolved]
  - Bradypnoea [Recovered/Resolved]
  - Bradypnoea [Recovered/Resolved]

NARRATIVE: CASE EVENT DATE: 20210408
